FAERS Safety Report 7391560-X (Version None)
Quarter: 2011Q2

REPORT INFORMATION
  Report Type: 
  Country: None (occurrence: None)
  Receive Date: 20110404
  Receipt Date: 20110321
  Transmission Date: 20111010
  Serious: Yes (Other)
  Sender: FDA-Public Use
  Company Number: PHHY2011US15072

PATIENT
  Sex: Female

DRUGS (11)
  1. ASPIRIN [Concomitant]
     Dosage: 81 MG, UNK
     Route: 048
  2. COZAAR [Concomitant]
     Dosage: UNK
     Route: 048
  3. PRILOSEC [Concomitant]
     Dosage: UNK
     Route: 048
  4. METHOTREXATE [Concomitant]
     Dosage: UNK
     Route: 048
  5. KLONOPIN [Concomitant]
     Dosage: UNK
     Route: 048
  6. RECLAST [Suspect]
     Dosage: 5 MG, UNK
     Dates: start: 20101101
  7. RECLAST [Suspect]
     Indication: OSTEOPENIA
     Dosage: 5 MG
     Route: 042
     Dates: start: 20080502, end: 20090622
  8. RECLAST [Suspect]
     Dosage: 5 MG, UNK
     Dates: start: 20090601
  9. MULTI-VITAMINS [Concomitant]
  10. ASCORBIC ACID [Concomitant]
  11. ENBREL [Concomitant]
     Indication: RHEUMATOID ARTHRITIS
     Dosage: UNK
     Route: 058

REACTIONS (3)
  - FALL [None]
  - PERIPROSTHETIC FRACTURE [None]
  - FEMUR FRACTURE [None]
